FAERS Safety Report 10147007 (Version 2)
Quarter: 2014Q2

REPORT INFORMATION
  Report Type: Spontaneous
  Country: GB (occurrence: GB)
  Receive Date: 20140501
  Receipt Date: 20140515
  Transmission Date: 20141212
  Serious: Yes (Hospitalization)
  Sender: FDA-Public Use
  Company Number: GB-GLAXOSMITHKLINE-B0989441A

PATIENT
  Sex: Male

DRUGS (4)
  1. TAFINLAR [Suspect]
     Indication: MALIGNANT MELANOMA
     Dosage: 150MG TWICE PER DAY
     Route: 048
     Dates: end: 20140417
  2. TRAMETINIB [Suspect]
     Indication: MALIGNANT MELANOMA
     Dosage: 2MG TWICE PER DAY
     Route: 048
     Dates: end: 20140417
  3. OMEPRAZOLE [Concomitant]
  4. DOMPERIDONE [Concomitant]

REACTIONS (2)
  - Convulsion [Not Recovered/Not Resolved]
  - Infection [Not Recovered/Not Resolved]
